FAERS Safety Report 6029661-0 (Version None)
Quarter: 2009Q1

REPORT INFORMATION
  Report Type: 
  Country: None (occurrence: None)
  Receive Date: 20090107
  Receipt Date: 20081231
  Transmission Date: 20090719
  Serious: Yes (Other)
  Sender: FDA-Public Use
  Company Number: CA-JNJFOC-20080803140

PATIENT
  Sex: Female
  Weight: 76 kg

DRUGS (9)
  1. REMICADE [Suspect]
     Dosage: LOADING DOSE # 2
     Route: 042
  2. REMICADE [Suspect]
     Dosage: LOADING DOSE #1
     Route: 042
  3. REMICADE [Suspect]
     Indication: RHEUMATOID ARTHRITIS
     Route: 042
  4. OXYCODONE [Concomitant]
  5. PREDNISONE [Concomitant]
     Route: 048
  6. ASPIRIN [Concomitant]
  7. GABAPENTIN [Concomitant]
  8. OMEPRAZOLE [Concomitant]
  9. CANDESARTAN [Concomitant]

REACTIONS (6)
  - BACK PAIN [None]
  - CHEST PAIN [None]
  - DYSPNOEA [None]
  - INFUSION RELATED REACTION [None]
  - LEG AMPUTATION [None]
  - ROAD TRAFFIC ACCIDENT [None]
